FAERS Safety Report 6358145-5 (Version None)
Quarter: 2009Q3

REPORT INFORMATION
  Report Type: 
  Country: None (occurrence: None)
  Receive Date: 20090911
  Receipt Date: 20090901
  Transmission Date: 20100115
  Serious: Yes (Other)
  Sender: FDA-Public Use
  Company Number: GXKR2009BR09906

PATIENT
  Sex: Female

DRUGS (4)
  1. METFORMIN HCL [Suspect]
     Dosage: , ORAL
     Route: 048
  2. SIMVASTATIN [Suspect]
     Dosage: , ORAL
     Route: 048
  3. CAPTOPRIL [Suspect]
     Dosage: , ORAL
     Route: 048
  4. CITALOPRAM HYDROBROMIDE [Suspect]
     Dosage: , ORAL
     Route: 048

REACTIONS (1)
  - DEMENTIA [None]
